FAERS Safety Report 11391881 (Version 1)
Quarter: 2015Q3

REPORT INFORMATION
  Report Type: Spontaneous
  Country: US (occurrence: US)
  Receive Date: 20150818
  Receipt Date: 20150818
  Transmission Date: 20151125
  Serious: Yes (Hospitalization)
  Sender: FDA-Public Use
  Company Number: US-APOTEX-2015AP011260

PATIENT

DRUGS (3)
  1. XANAX [Suspect]
     Active Substance: ALPRAZOLAM
     Indication: SLEEP DISORDER
     Dosage: 1 MG, Q.H.S.
     Route: 065
  2. LYRICA [Suspect]
     Active Substance: PREGABALIN
     Indication: NERVE COMPRESSION
     Dosage: 5 MG, BID
     Route: 065
     Dates: start: 20150506, end: 20150603
  3. ENALAPRIL [Suspect]
     Active Substance: ENALAPRIL
     Indication: HYPERTENSION
     Dosage: 20 MG, BID
     Route: 065

REACTIONS (19)
  - Fall [Unknown]
  - Lip dry [Unknown]
  - Limb injury [Not Recovered/Not Resolved]
  - Joint injury [Not Recovered/Not Resolved]
  - Irritability [Unknown]
  - Dyspnoea [Unknown]
  - Confusional state [Recovered/Resolved]
  - Gait disturbance [Unknown]
  - Disorientation [Unknown]
  - Headache [Recovered/Resolved]
  - Vision blurred [Recovered/Resolved]
  - Drug dose omission [Unknown]
  - Therapy cessation [Unknown]
  - Balance disorder [Unknown]
  - Feeling abnormal [Unknown]
  - Depression [Unknown]
  - Aphonia [Unknown]
  - Tongue dry [Unknown]
  - Disturbance in attention [Unknown]
